FAERS Safety Report 20087837 (Version 2)
Quarter: 2022Q1

REPORT INFORMATION
  Report Type: Report from Study
  Country: US (occurrence: US)
  Receive Date: 20211118
  Receipt Date: 20220217
  Transmission Date: 20220423
  Serious: Yes (Hospitalization, Other)
  Sender: FDA-Public Use
  Company Number: US-OTSUKA-2021_019353

PATIENT
  Age: 80 Year
  Sex: Female

DRUGS (1)
  1. CEDAZURIDINE\DECITABINE [Suspect]
     Active Substance: CEDAZURIDINE\DECITABINE
     Indication: Myelodysplastic syndrome
     Dosage: 135MG (35 MG OF DECITABINE AND 100 MG OF CEDAZURIDINE), QD FOR 4 DAYS) IN A ROW OUT OF 35-DAY CYCLE
     Route: 048
     Dates: start: 20210302

REACTIONS (5)
  - Spinal fracture [Unknown]
  - Contusion [Unknown]
  - Fall [Unknown]
  - Nausea [Not Recovered/Not Resolved]
  - Product use issue [Unknown]

NARRATIVE: CASE EVENT DATE: 20210302
